FAERS Safety Report 4815828-3 (Version None)
Quarter: 2005Q4

REPORT INFORMATION
  Report Type: 
  Country: None (occurrence: None)
  Receive Date: 20051026
  Receipt Date: 20051010
  Transmission Date: 20060501
  Serious: Yes (Other)
  Sender: FDA-Public Use
  Company Number: US_0506119444

PATIENT
  Age: 50 Year
  Sex: Female
  Weight: 81 kg

DRUGS (8)
  1. ZYPREXA [Suspect]
     Indication: SCHIZOPHRENIA
     Dosage: 20 MG DAY
     Dates: start: 20021008
  2. PROZAC [Concomitant]
  3. DITROPAN XL [Concomitant]
  4. VISTARIL [Concomitant]
  5. PREMARIN [Concomitant]
  6. QUININE SULFATE [Concomitant]
  7. BENADRYL [Concomitant]
  8. IBUPROFEN [Concomitant]

REACTIONS (10)
  - ALANINE AMINOTRANSFERASE INCREASED [None]
  - BLOOD ALKALINE PHOSPHATASE INCREASED [None]
  - BLOOD TRIGLYCERIDES INCREASED [None]
  - CHOLECYSTITIS ACUTE [None]
  - DIABETES MELLITUS [None]
  - GALLBLADDER DISORDER [None]
  - HYPERLIPIDAEMIA [None]
  - HYPERTENSION [None]
  - HYPOTHYROIDISM [None]
  - LOW DENSITY LIPOPROTEIN INCREASED [None]
